FAERS Safety Report 6919121-4 (Version None)
Quarter: 2010Q3

REPORT INFORMATION
  Report Type: 
  Country: None (occurrence: None)
  Receive Date: 20100811
  Receipt Date: 20100802
  Transmission Date: 20110219
  Serious: Yes (Hospitalization, Other)
  Sender: FDA-Public Use
  Company Number: JP-ROCHE-691355

PATIENT
  Sex: Male

DRUGS (3)
  1. AVASTIN [Suspect]
     Indication: LARGE INTESTINE CARCINOMA
     Route: 041
     Dates: start: 20100127, end: 20100217
  2. XELODA [Suspect]
     Indication: LARGE INTESTINE CARCINOMA
     Dosage: DRUG NAME: XELODA 300, DOSAGE IS UNCERTAIN.
     Route: 048
  3. ELPLAT [Concomitant]
     Dosage: DOSAGE IS UNCERTAIN.
     Route: 041

REACTIONS (2)
  - GASTRIC ULCER [None]
  - HAEMORRHAGE [None]
